FAERS Safety Report 6558592-2 (Version None)
Quarter: 2010Q1

REPORT INFORMATION
  Report Type: 
  Country: None (occurrence: None)
  Receive Date: 20100129
  Receipt Date: 20100120
  Transmission Date: 20100710
  Serious: Yes (Other)
  Sender: FDA-Public Use
  Company Number: US-JNJFOC-20100109679

PATIENT
  Age: 75 Year
  Sex: Male
  Weight: 86.18 kg

DRUGS (8)
  1. ST. JOSEPH ENTERIC COATED [Suspect]
     Indication: CARDIAC DISORDER
     Route: 048
  2. PLAVIX [Concomitant]
     Indication: CARDIAC DISORDER
  3. LIPITOR [Concomitant]
     Indication: BLOOD CHOLESTEROL INCREASED
  4. LISINOPRIL [Concomitant]
     Indication: HYPERTENSION
  5. CENTRUM SILVER [Concomitant]
     Dosage: YEARS
  6. AMLODIPINE BESYLATE [Concomitant]
     Indication: HYPERTENSION
  7. CARVEDILOL [Concomitant]
     Indication: CARDIAC DISORDER
  8. LEVETIRACETAM [Concomitant]
     Indication: CONVULSION

REACTIONS (3)
  - DEHYDRATION [None]
  - GASTROENTERITIS VIRAL [None]
  - PRODUCT QUALITY ISSUE [None]
